FAERS Safety Report 17373021 (Version 1)
Quarter: 2020Q1

REPORT INFORMATION
  Report Type: Spontaneous
  Country: US (occurrence: US)
  Receive Date: 20200205
  Receipt Date: 20200205
  Transmission Date: 20200409
  Serious: No
  Sender: FDA-Public Use
  Company Number: US-009507513-2001USA008217

PATIENT
  Age: 29 Year
  Sex: Female
  Weight: 100.23 kg

DRUGS (2)
  1. NEXPLANON [Suspect]
     Active Substance: ETONOGESTREL
     Indication: CONTRACEPTION
     Dosage: 1 ROD
     Route: 059
     Dates: end: 20200120
  2. NEXPLANON [Suspect]
     Active Substance: ETONOGESTREL
     Dosage: 1 ROD
     Route: 059
     Dates: start: 20200120

REACTIONS (5)
  - Temperature difference of extremities [Not Recovered/Not Resolved]
  - Implant site pain [Not Recovered/Not Resolved]
  - Implant site bruising [Not Recovered/Not Resolved]
  - Implant site paraesthesia [Not Recovered/Not Resolved]
  - Implant site hypoaesthesia [Not Recovered/Not Resolved]

NARRATIVE: CASE EVENT DATE: 20200122
